FAERS Safety Report 8183651-0 (Version None)
Quarter: 2012Q1

REPORT INFORMATION
  Report Type: 
  Country: None (occurrence: None)
  Receive Date: 20120130
  Receipt Date: 20111107
  Transmission Date: 20120608
  Serious: Yes (Hospitalization)
  Sender: FDA-Public Use
  Company Number: 045257

PATIENT
  Age: 33 Year
  Sex: Male
  Weight: 132 kg

DRUGS (3)
  1. KEPPRA [Suspect]
     Indication: CONVULSION
     Dosage: 3000 MG, 3000 MG DAILY ORAL
     Route: 048
  2. FLUOXETINE HCL [Concomitant]
  3. PROZAC [Concomitant]

REACTIONS (1)
  - SOMNOLENCE [None]
